FAERS Safety Report 21923727 (Version 2)
Quarter: 2023Q1

REPORT INFORMATION
  Report Type: Spontaneous
  Country: US (occurrence: None)
  Receive Date: 20230130
  Receipt Date: 20230302
  Transmission Date: 20230417
  Serious: Yes (Hospitalization)
  Sender: FDA-Public Use
  Company Number: 2023A016801

PATIENT
  Age: 85 Year
  Sex: Female

DRUGS (1)
  1. BUDESONIDE\FORMOTEROL [Suspect]
     Active Substance: BUDESONIDE\FORMOTEROL
     Indication: Chronic obstructive pulmonary disease
     Dosage: 160/4.5 INHALER BID
     Route: 055

REACTIONS (5)
  - Fall [Unknown]
  - Hip fracture [Unknown]
  - Wrist fracture [Unknown]
  - Product packaging quantity issue [Unknown]
  - Device malfunction [Unknown]
